FAERS Safety Report 5340167-4 (Version None)
Quarter: 2007Q2

REPORT INFORMATION
  Report Type: 
  Country: None (occurrence: None)
  Receive Date: 20070531
  Receipt Date: 20070529
  Transmission Date: 20071010
  Serious: Yes (Other)
  Sender: FDA-Public Use
  Company Number: A0653201A

PATIENT
  Age: 58 Year
  Sex: Male

DRUGS (10)
  1. AVANDAMET [Suspect]
     Route: 048
  2. CRESTOR [Concomitant]
  3. STARLIX [Concomitant]
  4. PLAVIX [Concomitant]
  5. SYNTHROID [Concomitant]
  6. LEXAPRO [Concomitant]
  7. WELLBUTRIN [Concomitant]
  8. LYRICA [Concomitant]
  9. AMBIEN [Concomitant]
  10. METOPROLOL SUCCINATE [Concomitant]

REACTIONS (2)
  - JOINT SWELLING [None]
  - MYOCARDIAL INFARCTION [None]
